FAERS Safety Report 17876061 (Version 1)
Quarter: 2020Q2

REPORT INFORMATION
  Report Type: Spontaneous
  Country: PK (occurrence: PK)
  Receive Date: 20200609
  Receipt Date: 20200609
  Transmission Date: 20200714
  Serious: Yes (Death, Other)
  Sender: FDA-Public Use
  Company Number: PK-ROCHE-2616582

PATIENT
  Age: 55 Year
  Sex: Male

DRUGS (1)
  1. ACTEMRA [Suspect]
     Active Substance: TOCILIZUMAB
     Indication: PNEUMONIA
     Dosage: TWO DOSES OF ACTEMRA (560 MG EACH)
     Route: 042

REACTIONS (5)
  - Pulmonary haemorrhage [Fatal]
  - Product use in unapproved indication [Fatal]
  - Cardiac arrest [Fatal]
  - Off label use [Fatal]
  - Pneumonia [Unknown]

NARRATIVE: CASE EVENT DATE: 20200529
